FAERS Safety Report 13533227 (Version 2)
Quarter: 2017Q3

REPORT INFORMATION
  Report Type: Spontaneous
  Country: US (occurrence: US)
  Receive Date: 20170510
  Receipt Date: 20170804
  Transmission Date: 20171127
  Serious: Yes (Death, Hospitalization)
  Sender: FDA-Public Use
  Company Number: US-KERYX BIOPHARMACEUTICALS, INC.-2017US002824

PATIENT
  Age: 69 Year
  Sex: Female

DRUGS (18)
  1. METOPROLOL SUCCINATE. [Concomitant]
     Active Substance: METOPROLOL SUCCINATE
     Dosage: 50 MG, QD
     Route: 048
     Dates: start: 20160208
  2. ACETAMINOPHEN. [Concomitant]
     Active Substance: ACETAMINOPHEN
     Dosage: 650 MG, Q4HR PRN
     Dates: start: 20160924
  3. BACITRACIN. [Concomitant]
     Active Substance: BACITRACIN
     Dosage: 50000 UNIT, IRRIGATION DAILY
     Dates: start: 20161220
  4. SODIUM THIOSULFATE [Concomitant]
     Active Substance: SODIUM THIOSULFATE
     Dosage: 12.5 MG, POST HEMODIALYSIS
     Route: 042
     Dates: start: 20170322
  5. LACTULOSE. [Concomitant]
     Active Substance: LACTULOSE
     Dosage: 30 ML, Q AM
     Route: 048
     Dates: start: 20170323
  6. AURYXIA [Suspect]
     Active Substance: TETRAFERRIC TRICITRATE DECAHYDRATE
     Indication: HYPERPHOSPHATAEMIA
     Dosage: 6 G (6 TABLETS), DAILY
     Dates: start: 20170313, end: 20170410
  7. RENAL VITE PLUS [Concomitant]
     Dosage: 1 TAB, UNK
     Route: 048
     Dates: start: 20161213
  8. HYDROXYZINE [Concomitant]
     Active Substance: HYDROXYZINE HYDROCHLORIDE
     Dosage: 25 MG, 4X DAY PRN
     Dates: start: 20161220
  9. NIFEDIPINE. [Concomitant]
     Active Substance: NIFEDIPINE
     Dosage: 1 APPLICATION
     Route: 061
     Dates: start: 20161220
  10. ASPIRIN                            /00002701/ [Concomitant]
     Active Substance: ASPIRIN
     Dosage: 81 MG, QD
     Route: 048
     Dates: start: 20160603
  11. CLOPIDOGREL BISULFATE. [Concomitant]
     Active Substance: CLOPIDOGREL BISULFATE
     Dosage: 75 MG, QD
     Route: 048
     Dates: start: 20161213
  12. CINACALCET [Concomitant]
     Active Substance: CINACALCET
     Dosage: 60 MG, QHS
     Route: 048
     Dates: start: 20160208
  13. HYDROMORPHONE [Concomitant]
     Active Substance: HYDROMORPHONE
     Dosage: 2 MG, Q4HR PRN
     Route: 048
     Dates: start: 20170323
  14. AMITRIPTYLINE [Concomitant]
     Active Substance: AMITRIPTYLINE
     Dosage: 25 MG, QHS
     Route: 048
     Dates: start: 20160924
  15. SIMVASTATIN. [Concomitant]
     Active Substance: SIMVASTATIN
     Dosage: 20 MG, QHS
     Route: 048
     Dates: start: 20160924
  16. POLYMYXIN [Concomitant]
     Active Substance: POLYMYXIN
     Dosage: 500000 UNIT, QD IRRIGATION
  17. RENVELA [Concomitant]
     Active Substance: SEVELAMER CARBONATE
     Dosage: 1 TAB, AC
     Route: 048
     Dates: start: 20170109
  18. EPOETIN ALFA [Concomitant]
     Active Substance: ERYTHROPOIETIN
     Dosage: 10000 UNIT, EVERY MON, WED, FRI
     Route: 058
     Dates: start: 20170109

REACTIONS (6)
  - Metabolic encephalopathy [Unknown]
  - Ammonia increased [Unknown]
  - Sleep apnoea syndrome [Unknown]
  - Polyneuropathy [Unknown]
  - Sepsis [Fatal]
  - Necrotising fasciitis streptococcal [Fatal]

NARRATIVE: CASE EVENT DATE: 20170319
